FAERS Safety Report 21051580 (Version 3)
Quarter: 2022Q3

REPORT INFORMATION
  Report Type: Spontaneous
  Country: JP (occurrence: JP)
  Receive Date: 20220707
  Receipt Date: 20220927
  Transmission Date: 20221026
  Serious: Yes (Other)
  Sender: FDA-Public Use
  Company Number: JP-ASTELLAS-2022JP010100

PATIENT
  Age: 9 Decade
  Sex: Male

DRUGS (2)
  1. XTANDI [Suspect]
     Active Substance: ENZALUTAMIDE
     Indication: Hormone-refractory prostate cancer
     Dosage: 160 MG/DAY, UNKNOWN FREQ.
     Route: 048
  2. NICORANDIL [Concomitant]
     Active Substance: NICORANDIL
     Indication: Product used for unknown indication
     Dosage: UNK UNK, UNKNOWN FREQ.
     Route: 048

REACTIONS (9)
  - Internal haemorrhage [Recovering/Resolving]
  - Hand dermatitis [Recovering/Resolving]
  - Ear pain [Unknown]
  - Peripheral swelling [Unknown]
  - Gait disturbance [Recovering/Resolving]
  - Limb discomfort [Unknown]
  - Malaise [Unknown]
  - Asthenia [Unknown]
  - Fatigue [Recovering/Resolving]

NARRATIVE: CASE EVENT DATE: 20220101
